FAERS Safety Report 5381526-3 (Version None)
Quarter: 2007Q2

REPORT INFORMATION
  Report Type: 
  Country: None (occurrence: None)
  Receive Date: 20070629
  Receipt Date: 20070312
  Transmission Date: 20071010
  Serious: Yes (Other)
  Sender: FDA-Public Use
  Company Number: US200703002337

PATIENT
  Age: 37 Year
  Sex: Female

DRUGS (4)
  1. HUMALOG [Suspect]
     Indication: DIABETES MELLITUS
     Dosage: SUB. PUMP
     Route: 058
     Dates: start: 19920101
  2. DIOVAN (HYDROCHLOROTHIAZIDE, VALSARTAN) [Concomitant]
  3. LASIX [Concomitant]
  4. LOVASTATIN [Concomitant]

REACTIONS (3)
  - BLOOD GLUCOSE INCREASED [None]
  - RENAL TRANSPLANT [None]
  - TRANSPLANT FAILURE [None]
